FAERS Safety Report 21894451 (Version 3)
Quarter: 2024Q2

REPORT INFORMATION
  Report Type: Spontaneous
  Country: US (occurrence: US)
  Receive Date: 20230121
  Receipt Date: 20240429
  Transmission Date: 20240716
  Serious: No
  Sender: FDA-Public Use
  Company Number: US-SA-SAC20230119000228

PATIENT
  Sex: Male

DRUGS (1)
  1. DUPIXENT [Suspect]
     Active Substance: DUPILUMAB
     Indication: Skin disorder
     Dosage: 300 MG, QOW
     Route: 058

REACTIONS (4)
  - Dermatitis psoriasiform [Recovering/Resolving]
  - Myalgia [Unknown]
  - Arthralgia [Unknown]
  - Product use in unapproved indication [Unknown]
